FAERS Safety Report 7898661-8 (Version None)
Quarter: 2011Q4

REPORT INFORMATION
  Report Type: 
  Country: None (occurrence: None)
  Receive Date: 20111103
  Receipt Date: 20111019
  Transmission Date: 20120403
  Serious: Yes (Hospitalization, Congenital Anomaly)
  Sender: FDA-Public Use
  Company Number: 1000024660

PATIENT

DRUGS (7)
  1. ESCITALOPRAM [Suspect]
     Dosage: 10 MG (10 MG, 1 IN 1 D), TRANSPLACENTAL 5 (5 MG, 1 IN 1 D), TRANSPLACENTAL
     Route: 064
     Dates: start: 20101228, end: 20110209
  2. ESCITALOPRAM [Suspect]
     Dosage: 10 MG (10 MG, 1 IN 1 D), TRANSPLACENTAL 5 (5 MG, 1 IN 1 D), TRANSPLACENTAL
     Route: 064
     Dates: start: 20101013, end: 20101228
  3. ESCITALOPRAM [Suspect]
     Dosage: 10 MG (10 MG, 1 IN 1 D), TRANSPLACENTAL 5 (5 MG, 1 IN 1 D), TRANSPLACENTAL
     Route: 064
     Dates: start: 20100701, end: 20100918
  4. LEXATIN (BROMAZEPAM) [Suspect]
     Dosage: 3MG (1.5 MG, 2 IN ID ) TRANSPLACENTAL
     Route: 064
     Dates: start: 20101013, end: 20101124
  5. LEXATIN (BROMAZEPAM) [Suspect]
     Dosage: 3MG (1.5 MG, 2 IN ID ) TRANSPLACENTAL
     Route: 064
     Dates: start: 20101124, end: 20110209
  6. LEXATIN (BROMAZEPAM) [Suspect]
     Dosage: 3 MG (1.5 MG, 2 IN 1 D), TRANSPLACENTAL 1.5 MG (1.5 MG, 1 IN 1 D), TRANSPLACENTAL
     Route: 064
     Dates: start: 20101124, end: 20110209
  7. LEXATIN (BROMAZEPAM) [Suspect]
     Dosage: 3 MG (1.5 MG, 2 IN 1 D), TRANSPLACENTAL 1.5 MG (1.5 MG, 1 IN 1 D), TRANSPLACENTAL
     Route: 064
     Dates: start: 20101013, end: 20101124

REACTIONS (10)
  - NEONATAL HYPOPARATHYROIDISM [None]
  - PREMATURE BABY [None]
  - FOETAL DISTRESS SYNDROME [None]
  - FOETAL EXPOSURE DURING PREGNANCY [None]
  - ATRIAL SEPTAL DEFECT [None]
  - ANAEMIA NEONATAL [None]
  - HYPOPARATHYROIDISM [None]
  - HYPOCALCAEMIA [None]
  - TWIN PREGNANCY [None]
  - CAESAREAN SECTION [None]
